FAERS Safety Report 21908040 (Version 2)
Quarter: 2023Q1

REPORT INFORMATION
  Report Type: Spontaneous
  Country: IT (occurrence: IT)
  Receive Date: 20230125
  Receipt Date: 20230211
  Transmission Date: 20230418
  Serious: Yes (Death, Hospitalization)
  Sender: FDA-Public Use
  Company Number: IT-TEVA-2023-IT-2848610

PATIENT
  Age: 30 Year
  Sex: Male

DRUGS (8)
  1. VINCRISTINE [Suspect]
     Active Substance: VINCRISTINE
     Indication: Hepatosplenic T-cell lymphoma
     Dosage: AS A PART OF CHOP CHEMOTHERAPY REGIMEN
     Route: 065
  2. VINCRISTINE [Suspect]
     Active Substance: VINCRISTINE
     Dosage: AS A PART OF HYPER-CVAD CHEMOTHERAPY
     Route: 065
  3. PREDNISONE [Suspect]
     Active Substance: PREDNISONE
     Indication: Hepatosplenic T-cell lymphoma
     Dosage: AS A PART OF CHOP CHEMOTHERAPY REGIMEN
     Route: 065
  4. HYDROXYDOXORUBICIN [Suspect]
     Active Substance: HYDROXYDOXORUBICIN
     Indication: Hepatosplenic T-cell lymphoma
     Dosage: AS A PART OF CHOP CHEMOTHERAPY REGIMEN
     Route: 065
  5. HYDROXYDOXORUBICIN [Suspect]
     Active Substance: HYDROXYDOXORUBICIN
     Dosage: AS A PART OF HYPER-CVAD CHEMOTHERAPY
     Route: 065
  6. DEXAMETHASONE [Suspect]
     Active Substance: DEXAMETHASONE
     Indication: Hepatosplenic T-cell lymphoma
     Dosage: AS A PART OF HYPER-CVAD CHEMOTHERAPY
     Route: 065
  7. CYCLOPHOSPHAMIDE [Suspect]
     Active Substance: CYCLOPHOSPHAMIDE
     Indication: Hepatosplenic T-cell lymphoma
     Dosage: AS A PART OF CHOP CHEMOTHERAPY REGIMEN
     Route: 065
  8. CYCLOPHOSPHAMIDE [Suspect]
     Active Substance: CYCLOPHOSPHAMIDE
     Dosage: AS A PART OF HYPER-CVAD CHEMOTHERAPY
     Route: 065

REACTIONS (1)
  - Drug ineffective [Fatal]
